FAERS Safety Report 16072389 (Version 1)
Quarter: 2019Q1

REPORT INFORMATION
  Report Type: Spontaneous
  Country: US (occurrence: US)
  Receive Date: 20190314
  Receipt Date: 20190314
  Transmission Date: 20190418
  Serious: No
  Sender: FDA-Public Use
  Company Number: US-ALLERGAN-1830554US

PATIENT
  Age: 15 Year
  Sex: Female

DRUGS (2)
  1. MESALAZINE - BP [Suspect]
     Active Substance: MESALAMINE
     Indication: CROHN^S DISEASE
  2. MESALAZINE - BP [Suspect]
     Active Substance: MESALAMINE
     Indication: COLITIS ULCERATIVE
     Dosage: 800 MG, BID
     Route: 048
     Dates: start: 20171020

REACTIONS (1)
  - Drug ineffective [Unknown]
